FAERS Safety Report 9491638 (Version 1)
Quarter: 2013Q1

REPORT INFORMATION
  Report Type: Not Available
  Country: US (occurrence: US)
  Receive Date: 20121219
  Receipt Date: 20121219
  Transmission Date: 20140127
  Serious: Yes (Other)
  Sender: FDA-Public Use
  Company Number: US-LUNDBECK-DKLU1084491

PATIENT
  Age: 43 None
  Sex: Female

DRUGS (1)
  1. ONFI [Suspect]
     Indication: CONVULSION
     Route: 048
     Dates: start: 20120822, end: 20120823

REACTIONS (2)
  - Convulsion [Unknown]
  - Anxiety [Unknown]
